FAERS Safety Report 16171091 (Version 1)
Quarter: 2019Q2

REPORT INFORMATION
  Report Type: Spontaneous
  Country: US (occurrence: US)
  Receive Date: 20190408
  Receipt Date: 20190408
  Transmission Date: 20190711
  Serious: No
  Sender: FDA-Public Use
  Company Number: US-GLAXOSMITHKLINE-US2019GSK059773

PATIENT
  Sex: Female

DRUGS (2)
  1. NUCALA [Suspect]
     Active Substance: MEPOLIZUMAB
     Indication: PRODUCT USED FOR UNKNOWN INDICATION
     Dosage: 100MG EVERY FOUR WEEKS
     Dates: end: 2019
  2. NUCALA [Suspect]
     Active Substance: MEPOLIZUMAB
     Dosage: 100MG EVERY FOUR WEEKS
     Route: 042
     Dates: start: 201903

REACTIONS (5)
  - Vomiting [Recovered/Resolved]
  - Respiratory symptom [Unknown]
  - Condition aggravated [Unknown]
  - Abdominal discomfort [Recovered/Resolved]
  - Adverse reaction [Recovered/Resolved]
